FAERS Safety Report 7626434-X (Version None)
Quarter: 2011Q3

REPORT INFORMATION
  Report Type: 
  Country: None (occurrence: None)
  Receive Date: 20110714
  Receipt Date: 20110630
  Transmission Date: 20111222
  Serious: Yes (Death)
  Sender: FDA-Public Use
  Company Number: 2011S1000232

PATIENT
  Sex: Female

DRUGS (1)
  1. INOMAX [Suspect]
     Dosage: ;CONT; INH
     Route: 055
     Dates: start: 20110629, end: 20110629

REACTIONS (1)
  - CARDIO-RESPIRATORY ARREST [None]
